FAERS Safety Report 6197429-0 (Version None)
Quarter: 2009Q2

REPORT INFORMATION
  Report Type: 
  Country: None (occurrence: None)
  Receive Date: 20090521
  Receipt Date: 20090507
  Transmission Date: 20091009
  Serious: Yes (Death, Hospitalization)
  Sender: FDA-Public Use
  Company Number: IT-CELGENEUS-083-C5013-09011294

PATIENT
  Sex: Female
  Weight: 65 kg

DRUGS (9)
  1. CC-5013 [Suspect]
     Indication: MULTIPLE MYELOMA
     Route: 048
     Dates: start: 20090102, end: 20090121
  2. CC-5013 [Suspect]
     Route: 048
     Dates: end: 20090218
  3. DEXAMETHASONE 4MG TAB [Suspect]
     Indication: MULTIPLE MYELOMA
     Route: 065
     Dates: start: 20090102, end: 20090123
  4. DEXAMETHASONE 4MG TAB [Suspect]
     Route: 051
     Dates: end: 20090218
  5. ZOMETA [Concomitant]
     Indication: BONE LESION
     Route: 051
     Dates: start: 20081224, end: 20090113
  6. TORADOL [Concomitant]
     Indication: BONE PAIN
     Route: 060
     Dates: start: 20081218, end: 20090126
  7. CLINIMIX [Concomitant]
     Indication: PARENTERAL NUTRITION
     Route: 051
     Dates: start: 20090121, end: 20090202
  8. CLINIMIX [Concomitant]
     Route: 051
     Dates: start: 20090214, end: 20090403
  9. ACETAMINOPHEN [Concomitant]
     Route: 048
     Dates: start: 20090119, end: 20090202

REACTIONS (2)
  - PYREXIA [None]
  - TOXIC EPIDERMAL NECROLYSIS [None]
